FAERS Safety Report 9857571 (Version 1)
Quarter: 2014Q1

REPORT INFORMATION
  Report Type: Spontaneous
  Country: US (occurrence: US)
  Receive Date: 20140131
  Receipt Date: 20140131
  Transmission Date: 20141002
  Serious: Yes (Other)
  Sender: FDA-Public Use
  Company Number: PHHY2014US009107

PATIENT
  Age: 42 Year
  Sex: Male

DRUGS (1)
  1. CLOFAZIMINE [Suspect]
     Indication: LEPROMATOUS LEPROSY

REACTIONS (3)
  - Type 2 lepra reaction [Unknown]
  - Neuritis [Unknown]
  - Neuropathy peripheral [Unknown]
